FAERS Safety Report 12305528 (Version 1)
Quarter: 2016Q2

REPORT INFORMATION
  Report Type: Report from Study
  Country: US (occurrence: US)
  Receive Date: 20160426
  Receipt Date: 20160426
  Transmission Date: 20160815
  Serious: Yes (Hospitalization)
  Sender: FDA-Public Use
  Company Number: US-EISAI MEDICAL RESEARCH-EC-2016-015897

PATIENT
  Sex: Female
  Weight: 50 kg

DRUGS (9)
  1. ENALAPRIL MALEATE. [Concomitant]
     Active Substance: ENALAPRIL MALEATE
  2. ADVAIR DISKUS [Concomitant]
     Active Substance: FLUTICASONE PROPIONATE\SALMETEROL XINAFOATE
  3. ACETAMINOPHEN\HYDROCODONE BITARTRATE [Concomitant]
     Active Substance: ACETAMINOPHEN\HYDROCODONE BITARTRATE
  4. SPIRIVA [Concomitant]
     Active Substance: TIOTROPIUM BROMIDE MONOHYDRATE
  5. SYNTHROID [Concomitant]
     Active Substance: LEVOTHYROXINE SODIUM
  6. LENVIMA [Suspect]
     Active Substance: LENVATINIB
     Indication: THYROID CANCER
     Route: 048
     Dates: start: 201603, end: 2016
  7. LENVIMA [Suspect]
     Active Substance: LENVATINIB
     Indication: THYROID CANCER
  8. MULTIVITAMINS [Concomitant]
     Active Substance: VITAMINS
  9. VENTOLIN HFA [Concomitant]
     Active Substance: ALBUTEROL SULFATE

REACTIONS (2)
  - Hypertension [Unknown]
  - Hypotension [Unknown]

NARRATIVE: CASE EVENT DATE: 2016
